FAERS Safety Report 6008231-4 (Version None)
Quarter: 2008Q4

REPORT INFORMATION
  Report Type: 
  Country: None (occurrence: None)
  Receive Date: 20081217
  Receipt Date: 20080929
  Transmission Date: 20090506
  Serious: No
  Sender: FDA-Public Use
  Company Number: US-ASTRAZENECA-2008UW15757

PATIENT
  Age: 76 Year
  Sex: Female

DRUGS (5)
  1. CRESTOR [Suspect]
     Indication: BLOOD CHOLESTEROL INCREASED
     Route: 048
     Dates: start: 20080601
  2. PREVACID [Concomitant]
  3. LEXAPRO [Concomitant]
  4. HYZAAR [Concomitant]
  5. SYNTHROID [Concomitant]

REACTIONS (2)
  - AMNESIA [None]
  - HYPERHIDROSIS [None]
